FAERS Safety Report 7982291-3 (Version None)
Quarter: 2011Q4

REPORT INFORMATION
  Report Type: 
  Country: None (occurrence: None)
  Receive Date: 20111214
  Receipt Date: 20111214
  Transmission Date: 20120403
  Serious: Yes (Hospitalization)
  Sender: FDA-Public Use
  Company Number: None

PATIENT
  Age: 52 Year
  Sex: Male
  Weight: 95 kg

DRUGS (13)
  1. LAPATINIB [Suspect]
     Dosage: 1250 MG FOR 21 DAYS PO
     Route: 048
  2. BENZONATATE [Concomitant]
  3. NEXIUM [Concomitant]
  4. RAMIPRIL [Concomitant]
  5. ASPIRIN [Concomitant]
  6. LOVENOX [Concomitant]
  7. CIALIS [Concomitant]
  8. ALLOPURINOL [Concomitant]
  9. AMIODARONE HCL [Concomitant]
  10. TAXOTERE [Suspect]
     Indication: BLADDER CANCER
     Dosage: 165 MG Q 3 WEEKS IV
     Route: 042
  11. LISINOPRIL [Concomitant]
  12. LASIX [Concomitant]
  13. METOPROLOL TARTRATE [Concomitant]

REACTIONS (4)
  - NEUTROPENIA [None]
  - DEHYDRATION [None]
  - PNEUMONIA [None]
  - SYNCOPE [None]
